FAERS Safety Report 6617613-9 (Version None)
Quarter: 2010Q1

REPORT INFORMATION
  Report Type: 
  Country: None (occurrence: None)
  Receive Date: 20100308
  Receipt Date: 20100224
  Transmission Date: 20100710
  Serious: Yes (Other)
  Sender: FDA-Public Use
  Company Number: GB-SANOFI-AVENTIS-2010SA011161

PATIENT
  Age: 65 Year
  Sex: Female

DRUGS (1)
  1. DANOL [Suspect]
     Indication: HEREDITARY ANGIOEDEMA
     Route: 065

REACTIONS (1)
  - BREAST CANCER [None]
